FAERS Safety Report 6295680-2 (Version None)
Quarter: 2009Q3

REPORT INFORMATION
  Report Type: 
  Country: None (occurrence: None)
  Receive Date: 20090803
  Receipt Date: 20090803
  Transmission Date: 20100115
  Serious: No
  Sender: FDA-Public Use
  Company Number: None

PATIENT
  Age: 59 Year
  Sex: Female

DRUGS (7)
  1. VYTORIN [Suspect]
     Dates: start: 20060807, end: 20080103
  2. INTERFERON BETA 1A [Suspect]
     Dates: end: 20080103
  3. MACRODANTIN [Concomitant]
  4. ESTRATEST [Concomitant]
  5. ZYPREXA [Concomitant]
  6. PROVIGIL [Concomitant]
  7. COPAXONE [Concomitant]

REACTIONS (9)
  - ALANINE AMINOTRANSFERASE INCREASED [None]
  - ASPARTATE AMINOTRANSFERASE INCREASED [None]
  - BLOOD ALKALINE PHOSPHATASE INCREASED [None]
  - BLOOD BILIRUBIN INCREASED [None]
  - CHRONIC OBSTRUCTIVE PULMONARY DISEASE [None]
  - HEPATOTOXICITY [None]
  - LEUKOPENIA [None]
  - LIVER DISORDER [None]
  - LIVER INJURY [None]
